FAERS Safety Report 9466594 (Version 3)
Quarter: 2013Q4

REPORT INFORMATION
  Report Type: Spontaneous
  Country: CA (occurrence: CA)
  Receive Date: 20130820
  Receipt Date: 20131106
  Transmission Date: 20140711
  Serious: Yes (Hospitalization)
  Sender: FDA-Public Use
  Company Number: CA-PFIZER INC-2013239229

PATIENT
  Age: 68 Year
  Sex: Female

DRUGS (18)
  1. RAMIPRIL [Suspect]
     Indication: HYPERTENSION
     Dosage: UNK
     Route: 065
     Dates: end: 20121128
  2. CELEBREX [Suspect]
     Dosage: UNK
     Route: 065
  3. CITALOPRAM HBR [Suspect]
     Indication: DEPRESSION
     Dosage: UNK
     Route: 065
  4. LYRICA [Suspect]
     Indication: BACK PAIN
     Dosage: 150 MG, 2X/DAY
     Route: 065
     Dates: start: 1990, end: 20090825
  5. LASIX [Suspect]
     Indication: FLUID RETENTION
     Dosage: 20 MG, DAILY
     Route: 065
     Dates: start: 20090715, end: 20090825
  6. INSULIN [Suspect]
     Dosage: UNK
     Route: 065
  7. ACETAMINOPHEN [Concomitant]
     Dosage: UNK
     Dates: start: 20121128
  8. ATORVASTATIN [Concomitant]
     Dosage: UNK
  9. BISOPROLOL [Concomitant]
     Dosage: UNK
  10. FENOFIBRATE [Concomitant]
     Dosage: UNK
  11. LANTUS [Concomitant]
     Dosage: UNK
     Dates: start: 20130121
  12. METFORMIN [Concomitant]
     Dosage: UNK
  13. METOPROLOL [Concomitant]
     Dosage: UNK
  14. OXYCONTIN [Concomitant]
     Dosage: UNK
     Dates: start: 20121128
  15. PANTOPRAZOLE [Concomitant]
     Dosage: UNK
  16. PERINDOPRIL [Concomitant]
     Dosage: UNK
     Dates: start: 20121128
  17. RABEPRAZOLE [Concomitant]
     Dosage: UNK
  18. SALBUTAMOL [Concomitant]
     Dosage: UNK

REACTIONS (12)
  - Cognitive disorder [Unknown]
  - Depression [Not Recovered/Not Resolved]
  - Nervous system disorder [Not Recovered/Not Resolved]
  - Encephalopathy [Not Recovered/Not Resolved]
  - Dysarthria [Not Recovered/Not Resolved]
  - Myoclonus [Not Recovered/Not Resolved]
  - Muscular weakness [Not Recovered/Not Resolved]
  - Tremor [Not Recovered/Not Resolved]
  - Diabetes mellitus inadequate control [Recovering/Resolving]
  - Hypotension [Recovering/Resolving]
  - Renal failure [Recovering/Resolving]
  - Dyskinesia [Not Recovered/Not Resolved]
